FAERS Safety Report 7340074-1 (Version None)
Quarter: 2011Q1

REPORT INFORMATION
  Report Type: 
  Country: None (occurrence: None)
  Receive Date: 20110301
  Receipt Date: 20110218
  Transmission Date: 20110831
  Serious: Yes (Hospitalization)
  Sender: FDA-Public Use
  Company Number: US-JNJFOC-20100305999

PATIENT
  Age: 69 Year
  Sex: Male
  Weight: 95.5 kg

DRUGS (21)
  1. CELEXA [Concomitant]
  2. AMBIEN [Concomitant]
  3. ALLOPURINOL [Concomitant]
  4. LASIX [Concomitant]
  5. ASPIRIN [Concomitant]
  6. PERCOCET [Concomitant]
  7. VITAMIN B12 [Concomitant]
  8. METFORMIN HYDROCHLORIDE [Concomitant]
  9. METOPROLOL SUCCINATE [Concomitant]
  10. ZESTRIL [Concomitant]
  11. ZYLOPRIM [Concomitant]
  12. DECITABINE (DECITABINE) LYOPHILIZED POWDER [Suspect]
     Indication: MYELODYSPLASTIC SYNDROME
     Dosage: 30 MG, ORAL
     Route: 048
     Dates: start: 20100201, end: 20100201
  13. LISINOPRIL [Concomitant]
  14. PLAVIX [Concomitant]
  15. WELLBUTRIN [Concomitant]
  16. GLIPIZIDE [Concomitant]
  17. PERCOCET [Concomitant]
  18. FOLIC ACID [Concomitant]
  19. DECITABINE (DECITABINE) LYOPHILIZED POWDER [Suspect]
     Indication: MYELODYSPLASTIC SYNDROME
     Dosage: 20 MG, INTRAVENOUS
     Route: 042
     Dates: start: 20100202
  20. ZOCOR [Concomitant]
  21. SIMVASTATIN [Concomitant]

REACTIONS (3)
  - DYSPNOEA [None]
  - CHOLECYSTITIS [None]
  - NEUTROPENIC COLITIS [None]
